FAERS Safety Report 12807997 (Version 2)
Quarter: 2016Q4

REPORT INFORMATION
  Report Type: Report from Study
  Country: US (occurrence: US)
  Receive Date: 20161004
  Receipt Date: 20161024
  Transmission Date: 20170207
  Serious: No
  Sender: FDA-Public Use
  Company Number: US-SA-2016SA056948

PATIENT
  Age: 75 Year
  Sex: Female
  Weight: 62.2 kg

DRUGS (4)
  1. KYNAMRO [Suspect]
     Active Substance: MIPOMERSEN SODIUM
     Indication: BLOOD CHOLESTEROL INCREASED
     Route: 058
     Dates: start: 201603
  2. KYNAMRO [Suspect]
     Active Substance: MIPOMERSEN SODIUM
     Indication: TYPE IIA HYPERLIPIDAEMIA
     Route: 058
  3. ACETAMINOPHEN. [Concomitant]
     Active Substance: ACETAMINOPHEN
     Indication: PRODUCT USED FOR UNKNOWN INDICATION
     Route: 065
  4. FISH OIL [Concomitant]
     Active Substance: FISH OIL
     Indication: BLOOD CHOLESTEROL INCREASED
     Route: 048
     Dates: start: 1996

REACTIONS (12)
  - Aspartate aminotransferase increased [Unknown]
  - Gait disturbance [Unknown]
  - Alanine aminotransferase increased [Unknown]
  - Injection site pain [Not Recovered/Not Resolved]
  - Fatigue [Unknown]
  - Injection site erythema [Not Recovered/Not Resolved]
  - Chills [Unknown]
  - Back pain [Unknown]
  - Muscle spasms [Unknown]
  - Hyperhidrosis [Unknown]
  - Pyrexia [Unknown]
  - Myalgia [Unknown]

NARRATIVE: CASE EVENT DATE: 2016
